FAERS Safety Report 6121620-2 (Version None)
Quarter: 2009Q1

REPORT INFORMATION
  Report Type: 
  Country: None (occurrence: None)
  Receive Date: 20090317
  Receipt Date: 20090311
  Transmission Date: 20090719
  Serious: Yes (Hospitalization)
  Sender: FDA-Public Use
  Company Number: GB-ABBOTT-09P-167-0561845-00

PATIENT
  Sex: Male

DRUGS (4)
  1. HUMIRA [Suspect]
     Indication: ANKYLOSING SPONDYLITIS
     Dates: start: 20081101, end: 20090201
  2. DICLOFENAC [Concomitant]
     Indication: ANKYLOSING SPONDYLITIS
     Dates: start: 20081101
  3. AMOXICILLIN + CLAVULANATE POTASSIUM [Concomitant]
     Indication: LOWER RESPIRATORY TRACT INFECTION
     Dates: start: 20090217
  4. CO-DYDRAMOL [Concomitant]
     Indication: ANKYLOSING SPONDYLITIS
     Dates: start: 20081101

REACTIONS (2)
  - LOWER RESPIRATORY TRACT INFECTION [None]
  - PNEUMOTHORAX [None]
